FAERS Safety Report 14921752 (Version 2)
Quarter: 2018Q4

REPORT INFORMATION
  Report Type: Spontaneous
  Country: CO (occurrence: CO)
  Receive Date: 20180522
  Receipt Date: 20181120
  Transmission Date: 20190204
  Serious: Yes (Life-Threatening, Hospitalization, Other)
  Sender: FDA-Public Use
  Company Number: CO-BRISTOL-MYERS SQUIBB COMPANY-BMS-2018-043255

PATIENT
  Age: 41 Year
  Sex: Male

DRUGS (2)
  1. METFORMIN HYDROCHLORIDE. [Suspect]
     Active Substance: METFORMIN HYDROCHLORIDE
     Indication: TYPE 2 DIABETES MELLITUS
     Dosage: 100 TABLETS (DRUG INTERVAL DOSAGE UNIT NUMBER : 1 TOTAL)
     Route: 048
  2. GEMFIBROZIL. [Suspect]
     Active Substance: GEMFIBROZIL
     Indication: PRODUCT USED FOR UNKNOWN INDICATION
     Dosage: 100 TABLETS(DRUG INTERVAL DOSAGE UNIT NUMBER :1 TOTAL)
     Route: 048

REACTIONS (5)
  - Acute kidney injury [Recovered/Resolved]
  - Lactic acidosis [Recovering/Resolving]
  - Intentional overdose [Unknown]
  - Toxicity to various agents [Recovering/Resolving]
  - Suicidal ideation [Recovering/Resolving]
